FAERS Safety Report 10257443 (Version 1)
Quarter: 2014Q2

REPORT INFORMATION
  Report Type: Spontaneous
  Country: US (occurrence: None)
  Receive Date: 20140620
  Receipt Date: 20140620
  Transmission Date: 20141212
  Serious: Yes (Hospitalization)
  Sender: FDA-Public Use
  Company Number: 2391626

PATIENT
  Age: 51 Year
  Sex: Female
  Weight: 73.64 kg

DRUGS (13)
  1. KETOROLAC TROMETHAMINE [Suspect]
     Indication: MIGRAINE
     Route: 030
     Dates: start: 20140528, end: 20140528
  2. ACETAMINOPHEN W/HYDROCODONE [Concomitant]
  3. SACCHAROMYCES BOULARDII [Concomitant]
  4. NYSTATIN [Concomitant]
  5. BUTALBITAL, ACETAMINOPHEN + CAFFEINE [Concomitant]
  6. CLONAZEPAM [Concomitant]
  7. ONDANSETRON [Concomitant]
  8. LEVOTHYROXINE [Concomitant]
  9. ESTRADIOL [Concomitant]
  10. NYSTATIN W/TRIAMCINOLONE [Concomitant]
  11. ESTRADIOL [Concomitant]
  12. RANITIDINE HCL [Concomitant]
  13. PANTOPRAZOLE [Concomitant]

REACTIONS (1)
  - Colitis ischaemic [None]
